FAERS Safety Report 15778735 (Version 1)
Quarter: 2019Q1

REPORT INFORMATION
  Report Type: Report from Study
  Country: US (occurrence: US)
  Receive Date: 20190101
  Receipt Date: 20190101
  Transmission Date: 20190417
  Serious: Yes (Hospitalization, Other)
  Sender: FDA-Public Use
  Company Number: US-AUROBINDO-AUR-APL-2018-063948

PATIENT
  Age: 15 Month
  Sex: Male

DRUGS (1)
  1. DEXAMFETAMINE+AMFETAMINE [Suspect]
     Active Substance: AMPHETAMINE\DEXTROAMPHETAMINE
     Indication: PRODUCT USED FOR UNKNOWN INDICATION
     Dosage: UNK
     Route: 065

REACTIONS (4)
  - Hallucination [Recovered/Resolved]
  - Accidental exposure to product [Unknown]
  - Crying [Recovered/Resolved]
  - Dyskinesia [Recovered/Resolved]
